FAERS Safety Report 5175872-6 (Version None)
Quarter: 2006Q4

REPORT INFORMATION
  Report Type: 
  Country: None (occurrence: None)
  Receive Date: 20061215
  Receipt Date: 20061110
  Transmission Date: 20070319
  Serious: Yes (Death)
  Sender: FDA-Public Use
  Company Number: JP-ROCHE-471256

PATIENT
  Age: 91 Year
  Sex: Male
  Weight: 48 kg

DRUGS (6)
  1. ROCEPHIN [Suspect]
     Indication: PNEUMONIA
     Route: 041
     Dates: start: 20060930, end: 20061010
  2. LASIX [Concomitant]
     Route: 048
     Dates: start: 20060930, end: 20061010
  3. TWINPAL [Concomitant]
     Route: 041
     Dates: start: 20060930, end: 20061025
  4. INTRALIPID 10% [Concomitant]
     Route: 041
     Dates: start: 20060930, end: 20061025
  5. ACTIT [Concomitant]
     Route: 041
     Dates: start: 20060930, end: 20061025
  6. NEOLAMIN 3 B [Concomitant]
     Route: 041
     Dates: start: 20060930, end: 20061025

REACTIONS (2)
  - CARDIAC FAILURE [None]
  - PLATELET COUNT DECREASED [None]
